FAERS Safety Report 10228898 (Version 1)
Quarter: 2014Q2

REPORT INFORMATION
  Report Type: Spontaneous
  Country: US (occurrence: US)
  Receive Date: 20140610
  Receipt Date: 20140610
  Transmission Date: 20141212
  Serious: Yes (Hospitalization, Other)
  Sender: FDA-Public Use
  Company Number: PHHY2014US070454

PATIENT
  Sex: Female

DRUGS (11)
  1. LIORESAL INTRATECAL [Suspect]
     Indication: MUSCLE SPASTICITY
     Dosage: 825 UG/DAY
     Route: 037
  2. ACETYLSALICYLIC ACID [Suspect]
     Dosage: UNK UKN, UNK
  3. OMEPRAZOLE [Suspect]
     Dosage: UNK UKN, UNK
  4. AMLODIPINE [Suspect]
     Dosage: UNK UKN, UNK
  5. MORPHINE [Suspect]
     Dosage: 11.64 MG/DAY
  6. CYMBALTA [Suspect]
     Dosage: UNK UKN, UNK
  7. PATANOL [Suspect]
     Dosage: UNK UKN, UNK
  8. CLONIDINE [Suspect]
     Dosage: UNK UKN, UNK
  9. KEPPRA [Suspect]
     Dosage: UNK UKN, UNK
  10. DEPAKOTE [Suspect]
     Dosage: UNK UKN, UNK
  11. COZAAR [Suspect]
     Dosage: UNK UKN, UNK

REACTIONS (2)
  - Altered state of consciousness [Recovered/Resolved]
  - Drug hypersensitivity [Recovered/Resolved]
